FAERS Safety Report 13677538 (Version 1)
Quarter: 2017Q2

REPORT INFORMATION
  Report Type: Spontaneous
  Country: US (occurrence: US)
  Receive Date: 20170622
  Receipt Date: 20170622
  Transmission Date: 20170830
  Serious: No
  Sender: FDA-Public Use
  Company Number: US-BEH-2017081484

PATIENT
  Sex: Female

DRUGS (2)
  1. HIZENTRA [Suspect]
     Active Substance: HUMAN IMMUNOGLOBULIN G
     Indication: PRODUCT USED FOR UNKNOWN INDICATION
     Dosage: 12 G (60ML), UNK
     Route: 058
     Dates: start: 20170606, end: 20170606
  2. HIZENTRA [Suspect]
     Active Substance: HUMAN IMMUNOGLOBULIN G
     Dosage: UNK
     Route: 065
     Dates: start: 2012

REACTIONS (3)
  - Injection site infection [Unknown]
  - Injection site exfoliation [Unknown]
  - Injection site erythema [Unknown]

NARRATIVE: CASE EVENT DATE: 20170606
